FAERS Safety Report 17685706 (Version 1)
Quarter: 2020Q2

REPORT INFORMATION
  Report Type: Spontaneous
  Country: RO (occurrence: RO)
  Receive Date: 20200420
  Receipt Date: 20200420
  Transmission Date: 20200714
  Serious: Yes (Life-Threatening)
  Sender: FDA-Public Use
  Company Number: RO-JNJFOC-20200411319

PATIENT
  Age: 41 Year
  Sex: Male
  Weight: 143 kg

DRUGS (4)
  1. RISPOLEPT CONSTA [Suspect]
     Active Substance: RISPERIDONE
     Indication: PRODUCT USED FOR UNKNOWN INDICATION
     Dosage: 50 MG EVERY 2 WEEKS
     Route: 030
     Dates: start: 20200313, end: 20200326
  2. RISPOLEPT CONSTA [Suspect]
     Active Substance: RISPERIDONE
  3. RISPOLEPT CONSTA [Suspect]
     Active Substance: RISPERIDONE
  4. RISPOLEPT CONSTA [Suspect]
     Active Substance: RISPERIDONE

REACTIONS (2)
  - Delirium [Recovering/Resolving]
  - Psychomotor hyperactivity [Recovering/Resolving]

NARRATIVE: CASE EVENT DATE: 20200315
